FAERS Safety Report 7137703-4 (Version None)
Quarter: 2010Q4

REPORT INFORMATION
  Report Type: 
  Country: None (occurrence: None)
  Receive Date: 20101103
  Receipt Date: 20100712
  Transmission Date: 20110411
  Serious: Yes (Other)
  Sender: FDA-Public Use
  Company Number: 2010S1000842

PATIENT
  Age: 73 Year
  Sex: Female

DRUGS (3)
  1. CUBICIN [Suspect]
     Indication: CELLULITIS
     Dosage: 400 MG; Q24H; IV
     Route: 042
     Dates: start: 20100422, end: 20100428
  2. PIPERACILLIN [Concomitant]
  3. TAZOBACTAM [Concomitant]

REACTIONS (1)
  - PSEUDOMEMBRANOUS COLITIS [None]
